FAERS Safety Report 15042622 (Version 1)
Quarter: 2018Q2

REPORT INFORMATION
  Report Type: Spontaneous
  Country: US (occurrence: US)
  Receive Date: 20180621
  Receipt Date: 20180621
  Transmission Date: 20180711
  Serious: Yes (Hospitalization)
  Sender: FDA-Public Use
  Company Number: US-APOTEX-2018AP016156

PATIENT
  Age: 57 Year
  Sex: Female

DRUGS (1)
  1. LITHIUM CARBONATE. [Suspect]
     Active Substance: LITHIUM CARBONATE
     Indication: BIPOLAR DISORDER
     Dosage: UNK
     Route: 065

REACTIONS (7)
  - Toxicity to various agents [Unknown]
  - Vomiting [Recovering/Resolving]
  - Drug level above therapeutic [Recovering/Resolving]
  - Diarrhoea [Recovering/Resolving]
  - Leukocytosis [Recovering/Resolving]
  - Mental status changes [Recovering/Resolving]
  - Nephropathy toxic [Recovering/Resolving]
